FAERS Safety Report 7633903-5 (Version None)
Quarter: 2011Q3

REPORT INFORMATION
  Report Type: 
  Country: None (occurrence: None)
  Receive Date: 20110725
  Receipt Date: 20110719
  Transmission Date: 20111222
  Serious: Yes (Death, Hospitalization)
  Sender: FDA-Public Use
  Company Number: DE-EISAI INC-E2020-09481-SPO-DE

PATIENT
  Age: 82 Year
  Sex: Female

DRUGS (11)
  1. ARICEPT [Suspect]
     Route: 048
     Dates: start: 20090817, end: 20110401
  2. RAMILICH/DELIX [Concomitant]
     Dosage: 5 MG
  3. SOLIAN [Suspect]
     Dosage: 200-500 MG DAILY
     Route: 048
     Dates: start: 20110221, end: 20110323
  4. DELIX PLUS [Concomitant]
     Dosage: 5/25 MG
     Route: 048
  5. METFORMIN HCL [Concomitant]
     Dosage: 1000 MG
  6. PANTOPRAZOLE [Concomitant]
     Dosage: 40 MG
  7. REVLIMID [Concomitant]
  8. MIRTAZAPINE [Suspect]
     Dosage: 15-30 MG DAILY
     Route: 048
     Dates: start: 20110228, end: 20110401
  9. ZODIN [Concomitant]
  10. SOLIAN [Suspect]
     Dosage: 200 MG DAILY
     Route: 048
     Dates: start: 20110324, end: 20110401
  11. TRIMIPRAMINE MALEATE [Concomitant]
     Dosage: 100

REACTIONS (1)
  - LONG QT SYNDROME [None]
